FAERS Safety Report 14680060 (Version 1)
Quarter: 2018Q1

REPORT INFORMATION
  Report Type: Spontaneous
  Country: JP (occurrence: JP)
  Receive Date: 20180326
  Receipt Date: 20180326
  Transmission Date: 20180509
  Serious: Yes (Other)
  Sender: FDA-Public Use
  Company Number: JP-PFIZER INC-2018120185

PATIENT
  Age: 5 Year
  Sex: Male

DRUGS (2)
  1. PYRIMETHAMINE [Concomitant]
     Active Substance: PYRIMETHAMINE
  2. CLINDAMYCIN PHOSPHATE. [Suspect]
     Active Substance: CLINDAMYCIN PHOSPHATE

REACTIONS (1)
  - Liver injury [Unknown]
